FAERS Safety Report 25816691 (Version 2)
Quarter: 2025Q4

REPORT INFORMATION
  Report Type: Spontaneous
  Country: US (occurrence: US)
  Receive Date: 20250918
  Receipt Date: 20251017
  Transmission Date: 20260117
  Serious: No
  Sender: ABBVIE
  Company Number: US-ABBVIE-6460729

PATIENT
  Age: 47 Year
  Sex: Female

DRUGS (6)
  1. BOTOX [Suspect]
     Active Substance: ONABOTULINUMTOXINA
     Indication: Skin wrinkling
     Dosage: TIME INTERVAL: AS NECESSARY: FREQUENCY: REGULAR
     Route: 050
     Dates: start: 20240822, end: 20240822
  2. BOTOX [Suspect]
     Active Substance: ONABOTULINUMTOXINA
     Indication: Skin wrinkling
     Dosage: TIME INTERVAL: AS NECESSARY: FREQUENCY: REGULAR
     Route: 050
     Dates: start: 20250131, end: 20250131
  3. BOTOX [Suspect]
     Active Substance: ONABOTULINUMTOXINA
     Indication: Skin wrinkling
     Dosage: TIME INTERVAL: AS NECESSARY: FREQUENCY: REGULAR
     Route: 050
     Dates: start: 20250812, end: 20250812
  4. BOTOX [Suspect]
     Active Substance: ONABOTULINUMTOXINA
     Indication: Skin wrinkling
     Dosage: TIME INTERVAL: AS NECESSARY: FOLLOW UP ADDITIONAL UNITS ADDED; FREQUENCY: REGULAR
     Route: 050
     Dates: start: 20250829, end: 20250829
  5. BOTOX [Suspect]
     Active Substance: ONABOTULINUMTOXINA
     Indication: Skin wrinkling
     Dosage: TIME INTERVAL: AS NECESSARY: FOLLOW UP ADDITIONAL UNITS ADDED; FREQUENCY: REGULAR
     Route: 050
     Dates: start: 20250912, end: 20250912
  6. BOTOX [Suspect]
     Active Substance: ONABOTULINUMTOXINA
     Indication: Skin wrinkling
     Dosage: TIME INTERVAL: AS NECESSARY: FREQUENCY: REGULAR
     Route: 050
     Dates: start: 2022, end: 2022

REACTIONS (3)
  - Rheumatoid factor increased [Unknown]
  - Papule [Recovered/Resolved]
  - Drug resistance [Unknown]

NARRATIVE: CASE EVENT DATE: 20250601
